FAERS Safety Report 5260642-0 (Version None)
Quarter: 2007Q1

REPORT INFORMATION
  Report Type: 
  Country: None (occurrence: None)
  Receive Date: 20070309
  Receipt Date: 20061207
  Transmission Date: 20070707
  Serious: No
  Sender: FDA-Public Use
  Company Number: US-GLAXOSMITHKLINE-A0630603A

PATIENT
  Age: 33 Year
  Sex: Female

DRUGS (2)
  1. NICORETTE (MINT) [Suspect]
     Dates: start: 20061206, end: 20061206
  2. NICODERM CQ [Suspect]

REACTIONS (7)
  - APPLICATION SITE ERYTHEMA [None]
  - APPLICATION SITE EXCORIATION [None]
  - APPLICATION SITE PRURITUS [None]
  - APPLICATION SITE SWELLING [None]
  - HYPERSENSITIVITY [None]
  - SWELLING FACE [None]
  - SWOLLEN TONGUE [None]
